FAERS Safety Report 8541864-X (Version None)
Quarter: 2012Q3

REPORT INFORMATION
  Report Type: 
  Country: None (occurrence: None)
  Receive Date: 20120726
  Receipt Date: 20110912
  Transmission Date: 20120928
  Serious: No
  Sender: FDA-Public Use
  Company Number: US-ASTRAZENECA-2011SE54524

PATIENT
  Age: 40 Year
  Sex: Female
  Weight: 108.9 kg

DRUGS (3)
  1. SEROQUEL XR [Suspect]
     Indication: BIPOLAR II DISORDER
     Route: 048
  2. DEPAKOTE [Concomitant]
     Indication: BIPOLAR DISORDER
  3. TRAZODONE HYDROCHLORIDE [Concomitant]
     Indication: BIPOLAR DISORDER

REACTIONS (5)
  - DRUG DOSE OMISSION [None]
  - DECREASED APPETITE [None]
  - MALAISE [None]
  - INSOMNIA [None]
  - DRUG WITHDRAWAL SYNDROME [None]
